FAERS Safety Report 19938073 (Version 1)
Quarter: 2021Q4

REPORT INFORMATION
  Report Type: Spontaneous
  Country: US (occurrence: US)
  Receive Date: 20211011
  Receipt Date: 20211011
  Transmission Date: 20220304
  Serious: No
  Sender: FDA-Public Use
  Company Number: US-ROCHE-2723283

PATIENT
  Age: 54 Year
  Sex: Female

DRUGS (2)
  1. ZELBORAF [Suspect]
     Active Substance: VEMURAFENIB
     Indication: Cholangiocarcinoma
     Route: 048
     Dates: start: 20201030
  2. COTELLIC [Suspect]
     Active Substance: COBIMETINIB
     Indication: Cholangiocarcinoma
     Dosage: 20 MG
     Route: 065
     Dates: start: 20201030

REACTIONS (5)
  - Rash [Unknown]
  - Pain in extremity [Unknown]
  - Intentional product use issue [Unknown]
  - Intentional product use issue [Unknown]
  - Off label use [Unknown]

NARRATIVE: CASE EVENT DATE: 20201101
